FAERS Safety Report 14679747 (Version 3)
Quarter: 2018Q3

REPORT INFORMATION
  Report Type: Spontaneous
  Country: GB (occurrence: GB)
  Receive Date: 20180326
  Receipt Date: 20180914
  Transmission Date: 20181010
  Serious: Yes (Hospitalization, Other)
  Sender: FDA-Public Use
  Company Number: GB-AUROBINDO-AUR-APL-2018-016064

PATIENT
  Age: 46 Year
  Sex: Female
  Weight: 78 kg

DRUGS (4)
  1. TRAMADOL. [Suspect]
     Active Substance: TRAMADOL
     Indication: PRODUCT USED FOR UNKNOWN INDICATION
     Dosage: 200 MILLIGRAM, ONCE A DAY
     Route: 065
     Dates: start: 2015
  2. CITALOPRAM [Suspect]
     Active Substance: CITALOPRAM HYDROBROMIDE
     Indication: PRODUCT USED FOR UNKNOWN INDICATION
     Dosage: 40 MILLIGRAM
     Route: 065
     Dates: start: 2015
  3. COLECALCIFEROL [Suspect]
     Active Substance: CHOLECALCIFEROL
     Indication: VITAMIN D DEFICIENCY
     Dosage: 800 INTERNATIONAL UNIT, ONCE A DAY
     Route: 048
     Dates: start: 20170307, end: 20170527
  4. ZOPICLONE [Concomitant]
     Active Substance: ZOPICLONE
     Indication: PRODUCT USED FOR UNKNOWN INDICATION
     Dosage: UNK UNK, AS NECESSARY
     Route: 065

REACTIONS (7)
  - Loss of consciousness [Recovered/Resolved]
  - Tachycardia [Recovered/Resolved]
  - Dyspnoea [Recovered/Resolved]
  - Serotonin syndrome [Unknown]
  - Hypotonia [Unknown]
  - Body temperature increased [Unknown]
  - Drug interaction [Unknown]

NARRATIVE: CASE EVENT DATE: 20170526
